FAERS Safety Report 24973425 (Version 2)
Quarter: 2025Q1

REPORT INFORMATION
  Report Type: Report from Study
  Country: TW (occurrence: TW)
  Receive Date: 20250216
  Receipt Date: 20250220
  Transmission Date: 20250409
  Serious: Yes (Hospitalization)
  Sender: ABBVIE
  Company Number: TW-ABBVIE-6133753

PATIENT
  Age: 28 Year
  Sex: Male
  Weight: 116 kg

DRUGS (10)
  1. SKYRIZI [Suspect]
     Active Substance: RISANKIZUMAB-RZAA
     Indication: Psoriasis
     Dosage: SINGLE DOSE: 75MG/0.83ML/SYRINGE ?UNIT: 2?FREQUENCY: Q12W
     Route: 058
     Dates: start: 20230324, end: 20230324
  2. SKYRIZI [Suspect]
     Active Substance: RISANKIZUMAB-RZAA
     Dosage: SINGLE DOSE: 75MG/0.83ML/SYRINGE 2?UNIT: 2?FREQUENCY: STAT
     Route: 058
     Dates: start: 20230421
  3. BENZBROMARONE [Concomitant]
     Active Substance: BENZBROMARONE
     Indication: Gout
     Route: 048
     Dates: start: 20230519, end: 20230608
  4. COLCHICINE [Concomitant]
     Active Substance: COLCHICINE
     Indication: Gout
     Route: 048
     Dates: start: 20230519
  5. ACETAMINOPHEN [Concomitant]
     Active Substance: ACETAMINOPHEN
     Indication: Anal abscess
     Route: 048
     Dates: start: 20230220, end: 20230313
  6. DIETARY SUPPLEMENT\HERBALS\MILK THISTLE [Concomitant]
     Active Substance: MILK THISTLE
     Indication: Hepatic steatosis
     Route: 048
     Dates: start: 20230220
  7. PANCURONIUM BROMIDE [Concomitant]
     Active Substance: PANCURONIUM BROMIDE
     Indication: Anal abscess
     Route: 048
     Dates: start: 20230220, end: 20230313
  8. DAIVOBET [Concomitant]
     Active Substance: BETAMETHASONE DIPROPIONATE\CALCIPOTRIENE
     Indication: Product used for unknown indication
     Dosage: 1 APPLICATION
     Dates: start: 20230323, end: 20230518
  9. FEURI [Concomitant]
     Indication: Hyperuricaemia
     Route: 048
     Dates: start: 20230608
  10. AMOXICILLIN\CLAVULANATE POTASSIUM [Concomitant]
     Active Substance: AMOXICILLIN\CLAVULANATE POTASSIUM
     Indication: Anal abscess
     Route: 048
     Dates: start: 20230220, end: 20230313

REACTIONS (1)
  - Anal fistula [Recovered/Resolved]

NARRATIVE: CASE EVENT DATE: 20230508
